FAERS Safety Report 16225549 (Version 3)
Quarter: 2019Q4

REPORT INFORMATION
  Report Type: Spontaneous
  Country: US (occurrence: US)
  Receive Date: 20190422
  Receipt Date: 20191115
  Transmission Date: 20200122
  Serious: Yes (Other)
  Sender: FDA-Public Use
  Company Number: US-ASTRAZENECA-2019SE09928

PATIENT
  Sex: Female
  Weight: 122.1 kg

DRUGS (23)
  1. BYETTA [Concomitant]
     Active Substance: EXENATIDE
  2. PANTOPRAZOLE [Concomitant]
     Active Substance: PANTOPRAZOLE
  3. GABAPENTIN. [Concomitant]
     Active Substance: GABAPENTIN
  4. NEXIUM [Suspect]
     Active Substance: ESOMEPRAZOLE MAGNESIUM
     Route: 048
  5. TRICOR [Concomitant]
     Active Substance: FENOFIBRATE
  6. METFORMIN [Concomitant]
     Active Substance: METFORMIN HYDROCHLORIDE
  7. CIPROFLOXACIN. [Concomitant]
     Active Substance: CIPROFLOXACIN
  8. IBUPROFEN. [Concomitant]
     Active Substance: IBUPROFEN
  9. LOSARTAN. [Concomitant]
     Active Substance: LOSARTAN
  10. JANUVIA [Concomitant]
     Active Substance: SITAGLIPTIN PHOSPHATE
  11. GLIPIZIDE. [Concomitant]
     Active Substance: GLIPIZIDE
  12. LISINOPRIL. [Concomitant]
     Active Substance: LISINOPRIL
  13. FUROSEMIDE. [Concomitant]
     Active Substance: FUROSEMIDE
  14. HYDROCODONE [Concomitant]
     Active Substance: HYDROCODONE
  15. NEXIUM 24HR [Suspect]
     Active Substance: ESOMEPRAZOLE MAGNESIUM
     Route: 048
  16. ONDANSETRON [Concomitant]
     Active Substance: ONDANSETRON
  17. FLUVIRIN NOS [Concomitant]
     Active Substance: INFLUENZA VIRUS VACCINE
  18. TRAMADOL. [Concomitant]
     Active Substance: TRAMADOL
  19. NOVOLOG [Concomitant]
     Active Substance: INSULIN ASPART
  20. CLINDAMYCIN. [Concomitant]
     Active Substance: CLINDAMYCIN
  21. LANTUS [Concomitant]
     Active Substance: INSULIN GLARGINE
  22. CLOBETASOL [Concomitant]
     Active Substance: CLOBETASOL
  23. SODIUM BICARBONATE. [Concomitant]
     Active Substance: SODIUM BICARBONATE

REACTIONS (4)
  - Renal failure [Unknown]
  - Rebound acid hypersecretion [Unknown]
  - Renal injury [Unknown]
  - Chronic kidney disease [Unknown]
